FAERS Safety Report 9962556 (Version 1)
Quarter: 2014Q1

REPORT INFORMATION
  Report Type: Report from Study
  Country: US (occurrence: US)
  Receive Date: 20140305
  Receipt Date: 20140305
  Transmission Date: 20141002
  Serious: No
  Sender: FDA-Public Use
  Company Number: US-ABBVIE-13P-163-1115446-00

PATIENT
  Age: 60 Year
  Sex: Male

DRUGS (8)
  1. HUMIRA [Suspect]
     Indication: CROHN^S DISEASE
     Dosage: DAY 1
     Route: 058
     Dates: start: 20130603, end: 20130603
  2. HUMIRA [Suspect]
     Dosage: DAY 15
     Route: 058
  3. HUMIRA [Suspect]
     Route: 058
  4. METFORMIN [Concomitant]
     Indication: DIABETES MELLITUS
  5. PREDNISONE [Concomitant]
     Indication: CROHN^S DISEASE
     Dosage: TAPER
  6. SINGULAIR [Concomitant]
     Indication: MULTIPLE ALLERGIES
  7. FENOFIBRATE [Concomitant]
     Indication: BLOOD TRIGLYCERIDES INCREASED
  8. CORTIFOAM [Concomitant]
     Indication: CROHN^S DISEASE
     Route: 054

REACTIONS (2)
  - Palpitations [Recovered/Resolved]
  - Palpitations [Recovered/Resolved]
